FAERS Safety Report 11421178 (Version 2)
Quarter: 2015Q3

REPORT INFORMATION
  Report Type: Spontaneous
  Country: US (occurrence: US)
  Receive Date: 20150826
  Receipt Date: 20150908
  Transmission Date: 20151125
  Serious: Yes (Hospitalization)
  Sender: FDA-Public Use
  Company Number: US-LPDUSPRD-20150638

PATIENT
  Age: 23 Year
  Sex: Female

DRUGS (2)
  1. FOSPHENYTOIN SODIUM INJECTION, USP (025-21) [Suspect]
     Active Substance: FOSPHENYTOIN SODIUM
     Dosage: HIGH DOSE FOSPHENYTOIN
     Route: 065
  2. PHENOBARBITAL. [Concomitant]
     Active Substance: PHENOBARBITAL
     Dosage: DOSE NOT PROVIDED
     Route: 065

REACTIONS (2)
  - Coma [Recovered/Resolved with Sequelae]
  - Toxicity to various agents [Recovered/Resolved]
